FAERS Safety Report 14345154 (Version 1)
Quarter: 2018Q1

REPORT INFORMATION
  Report Type: Spontaneous
  Country: LU (occurrence: LU)
  Receive Date: 20180103
  Receipt Date: 20180103
  Transmission Date: 20180509
  Serious: Yes (Other)
  Sender: FDA-Public Use
  Company Number: LU-BAUSCH-BL-2017-036150

PATIENT
  Age: 26 Year
  Sex: Male

DRUGS (12)
  1. TARADYL [Suspect]
     Active Substance: KETOROLAC\KETOROLAC TROMETHAMINE
     Indication: APPENDICECTOMY
     Dates: start: 20170912, end: 20170912
  2. METRONIDAZOLE. [Suspect]
     Active Substance: METRONIDAZOLE
     Indication: APPENDICECTOMY
     Route: 065
     Dates: start: 20170912, end: 20170912
  3. POVIDONE-IODINE. [Suspect]
     Active Substance: POVIDONE-IODINE
     Indication: APPENDICECTOMY
     Route: 061
     Dates: start: 20170912, end: 20170912
  4. GELOFUSINE [Suspect]
     Active Substance: GELATIN\SODIUM CHLORIDE
     Indication: APPENDICECTOMY
     Route: 041
     Dates: start: 20170912, end: 20170912
  5. LIDOCAINE. [Suspect]
     Active Substance: LIDOCAINE
     Indication: APPENDICECTOMY
     Route: 065
     Dates: start: 20170912, end: 20170912
  6. ESMERON [Suspect]
     Active Substance: ROCURONIUM BROMIDE
     Indication: APPENDICECTOMY
     Route: 042
     Dates: start: 20170912, end: 20170912
  7. FORTECORTIN [Suspect]
     Active Substance: DEXAMETHASONE
     Indication: APPENDICECTOMY
     Route: 065
     Dates: start: 20170912, end: 20170912
  8. CEFUROXIME. [Suspect]
     Active Substance: CEFUROXIME
     Indication: APPENDICECTOMY
     Route: 065
     Dates: start: 20170912, end: 20170912
  9. CHLORHEXIDINE [Suspect]
     Active Substance: CHLORHEXIDINE
     Indication: APPENDICECTOMY
     Dates: start: 20170912, end: 20170912
  10. SUFENTA [Suspect]
     Active Substance: SUFENTANIL CITRATE
     Indication: APPENDICECTOMY
     Route: 042
     Dates: start: 20170912, end: 20170912
  11. PROPOFOL. [Suspect]
     Active Substance: PROPOFOL
     Indication: APPENDICECTOMY
     Route: 042
     Dates: start: 20170912, end: 20170912
  12. PARACETAMOL [Suspect]
     Active Substance: ACETAMINOPHEN
     Indication: APPENDICECTOMY
     Route: 065
     Dates: start: 20170912, end: 20170912

REACTIONS (1)
  - Anaphylactic reaction [Recovered/Resolved]

NARRATIVE: CASE EVENT DATE: 20170912
